FAERS Safety Report 15719947 (Version 2)
Quarter: 2019Q1

REPORT INFORMATION
  Report Type: Report from Study
  Country: US (occurrence: US)
  Receive Date: 20181213
  Receipt Date: 20190120
  Transmission Date: 20190417
  Serious: Yes (Other)
  Sender: FDA-Public Use
  Company Number: PHEH2018US052206

PATIENT
  Sex: Female
  Weight: 79.37 kg

DRUGS (1)
  1. GLATOPA [Suspect]
     Active Substance: GLATIRAMER ACETATE
     Indication: MULTIPLE SCLEROSIS
     Dosage: 20 MG, QD
     Route: 058
     Dates: start: 20180814

REACTIONS (4)
  - Injection site erythema [Not Recovered/Not Resolved]
  - Flushing [Recovering/Resolving]
  - Myocardial infarction [Recovering/Resolving]
  - Injection site mass [Not Recovered/Not Resolved]
